FAERS Safety Report 16659388 (Version 1)
Quarter: 2019Q3

REPORT INFORMATION
  Report Type: Spontaneous
  Country: PT (occurrence: PT)
  Receive Date: 20190802
  Receipt Date: 20190802
  Transmission Date: 20191004
  Serious: Yes (Other)
  Sender: FDA-Public Use
  Company Number: PT-AUROBINDO-AUR-APL-2019-044799

PATIENT

DRUGS (1)
  1. AMOXICILLIN+CLAVULANIC ACID [Suspect]
     Active Substance: AMOXICILLIN\CLAVULANIC ACID
     Indication: TONSILLITIS
     Dosage: 2000 MILLIGRAM, ONCE A DAY
     Route: 065

REACTIONS (7)
  - Acute generalised exanthematous pustulosis [Recovering/Resolving]
  - Pyrexia [Unknown]
  - C-reactive protein increased [Unknown]
  - Rash pustular [Unknown]
  - Prurigo [Unknown]
  - Skin lesion [Recovered/Resolved]
  - Leukocytosis [Unknown]
